FAERS Safety Report 4863016-7 (Version None)
Quarter: 2005Q4

REPORT INFORMATION
  Report Type: 
  Country: None (occurrence: None)
  Receive Date: 20051130
  Receipt Date: 20050825
  Transmission Date: 20060501
  Serious: No
  Sender: FDA-Public Use
  Company Number: FABR-11160

PATIENT
  Age: 62 Year
  Sex: Male

DRUGS (14)
  1. FABRAZYME [Suspect]
     Indication: FABRY'S DISEASE
     Dosage: 70 MG IV
     Route: 042
     Dates: start: 20050101
  2. FABRAZYME [Suspect]
     Indication: FABRY'S DISEASE
     Dosage: 70 MG Q2WKS IV
     Route: 042
     Dates: start: 20031214, end: 20050601
  3. RISPERDAL [Suspect]
     Indication: DEPRESSION
     Dates: start: 20050701
  4. RISPERDAL [Suspect]
     Indication: DEPRESSION
     Dosage: 0.5 MG QD
     Dates: start: 20050612, end: 20050523
  5. RISPERDAL [Suspect]
     Indication: DEPRESSION
     Dosage: 1.5 MG QD
     Dates: start: 20050602, end: 20050112
  6. REMERON [Suspect]
     Indication: DEPRESSION
     Dosage: 15 MG QD
     Dates: start: 20050707
  7. REMERON [Suspect]
     Indication: DEPRESSION
     Dosage: 15 MG QD
     Dates: start: 20050112, end: 20050523
  8. REMERON [Suspect]
     Indication: DEPRESSION
     Dates: start: 20041125, end: 20050112
  9. ARICEPT [Suspect]
     Indication: DEMENTIA ALZHEIMER'S TYPE
     Dosage: 5 MG QD
     Dates: start: 20050707
  10. ARICEPT [Suspect]
     Indication: DEMENTIA ALZHEIMER'S TYPE
     Dosage: 5 MG QD
     Dates: start: 20040614, end: 20050523
  11. RISPERDAL [Concomitant]
  12. REMERON [Concomitant]
  13. ARICEPT [Concomitant]
  14. DUMYROX [Concomitant]

REACTIONS (8)
  - ASTHENIA [None]
  - CONFUSIONAL STATE [None]
  - DEPRESSION [None]
  - DIZZINESS [None]
  - DYSPNOEA [None]
  - GAIT DISTURBANCE [None]
  - HYPERHIDROSIS [None]
  - TACHYCARDIA [None]
